FAERS Safety Report 20430171 (Version 1)
Quarter: 2022Q1

REPORT INFORMATION
  Report Type: Report from Study
  Country: FR (occurrence: FR)
  Receive Date: 20220204
  Receipt Date: 20220204
  Transmission Date: 20220424
  Serious: Yes (Hospitalization)
  Sender: FDA-Public Use
  Company Number: FR-SERVIER-S19012710

PATIENT

DRUGS (11)
  1. PEGASPARGASE [Suspect]
     Active Substance: PEGASPARGASE
     Indication: Acute lymphocytic leukaemia
     Dosage: 2500 IU, QD ON D4
     Route: 042
     Dates: start: 20190503, end: 20190503
  2. VINCRISTINE [Suspect]
     Active Substance: VINCRISTINE
     Indication: Acute lymphocytic leukaemia
     Dosage: 1.5 MG, ON D1, D8, D15, D22
     Route: 042
     Dates: start: 20190430, end: 20190527
  3. DOXORUBICIN [Suspect]
     Active Substance: DOXORUBICIN
     Indication: Acute lymphocytic leukaemia
     Dosage: 30 MG, ON D1, D8, D15, D22
     Route: 042
     Dates: start: 20190430, end: 20190527
  4. DEXAMETHASONE [Suspect]
     Active Substance: DEXAMETHASONE
     Indication: Acute lymphocytic leukaemia
     Dosage: 10 MG QD FROM D1 TO D7, D15 TO D21
     Route: 048
     Dates: start: 20190430, end: 20190526
  5. CYCLOPHOSPHAMIDE [Suspect]
     Active Substance: CYCLOPHOSPHAMIDE
     Indication: Acute lymphocytic leukaemia
     Dosage: 920 MG ON D29
     Route: 042
     Dates: start: 20190603, end: 20190603
  6. THIOGUANINE [Suspect]
     Active Substance: THIOGUANINE
     Indication: Acute lymphocytic leukaemia
     Dosage: 60 MG QD FROM D29 TO D42
     Route: 048
     Dates: start: 20190603, end: 20190617
  7. METHOTREXATE [Suspect]
     Active Substance: METHOTREXATE
     Indication: Acute lymphocytic leukaemia
     Dosage: 15 MG, ON D3, D31
     Route: 037
     Dates: start: 20190503, end: 20190605
  8. METHOTREXATE [Suspect]
     Active Substance: METHOTREXATE
     Dosage: 15 MG, ON D4, D31 INTENSIFICATION
     Route: 037
     Dates: start: 20190503, end: 20190605
  9. CYTARABINE [Suspect]
     Active Substance: CYTARABINE
     Indication: Acute lymphocytic leukaemia
     Dosage: 30 MG, D4, D31 INTENSIFICATION
     Route: 037
     Dates: start: 20190503, end: 20190605
  10. CYTARABINE [Suspect]
     Active Substance: CYTARABINE
     Dosage: 70 MG QD FROM D31 TO D34, D38 TO D41
     Route: 042
     Dates: start: 20190605, end: 20190615
  11. HYDROCORTISONE [Suspect]
     Active Substance: HYDROCORTISONE
     Indication: Acute lymphocytic leukaemia
     Dosage: 15 MG, D4, D31 INTENSIFICATION
     Route: 037
     Dates: start: 20190503, end: 20190605

REACTIONS (2)
  - Abdominal pain [Recovered/Resolved]
  - Myalgia [Recovered/Resolved]

NARRATIVE: CASE EVENT DATE: 20190517
